FAERS Safety Report 5317357-X (Version None)
Quarter: 2007Q2

REPORT INFORMATION
  Report Type: 
  Country: None (occurrence: None)
  Receive Date: 20070504
  Receipt Date: 20070504
  Transmission Date: 20071010
  Serious: Yes (Hospitalization, Other)
  Sender: FDA-Public Use
  Company Number: GB-ABBOTT-07P-167-0355675-00

PATIENT
  Sex: Female
  Weight: 40.8 kg

DRUGS (7)
  1. HUMIRA [Suspect]
     Indication: ANKYLOSING SPONDYLITIS
     Route: 058
     Dates: start: 20060918, end: 20061222
  2. HUMIRA [Suspect]
     Route: 058
  3. FENTANYL [Concomitant]
     Indication: PAIN
     Route: 062
  4. DIAZEPAM [Concomitant]
     Indication: DRUG USE FOR UNKNOWN INDICATION
     Route: 048
  5. PARACETAMOL [Concomitant]
     Indication: PAIN
     Route: 048
  6. FLUOXETINE [Concomitant]
     Indication: DRUG USE FOR UNKNOWN INDICATION
  7. MORPHINE [Concomitant]
     Indication: DRUG USE FOR UNKNOWN INDICATION
     Dates: start: 20070209

REACTIONS (11)
  - FLUSHING [None]
  - HYPERHIDROSIS [None]
  - KOEBNER PHENOMENON [None]
  - LYMPHADENOPATHY [None]
  - MALAISE [None]
  - PHARYNGOLARYNGEAL PAIN [None]
  - PUSTULAR PSORIASIS [None]
  - RASH PUSTULAR [None]
  - RASH VESICULAR [None]
  - SUBCORNEAL PUSTULAR DERMATOSIS [None]
  - TACHYCARDIA [None]
